FAERS Safety Report 5406502-3 (Version None)
Quarter: 2007Q3

REPORT INFORMATION
  Report Type: 
  Country: None (occurrence: None)
  Receive Date: 20070806
  Receipt Date: 20070711
  Transmission Date: 20080115
  Serious: Yes (Hospitalization, Other)
  Sender: FDA-Public Use
  Company Number: US-PFIZER INC-2002116089US

PATIENT
  Sex: Female

DRUGS (6)
  1. BEXTRA [Suspect]
     Indication: ARTHRITIS
     Route: 048
     Dates: start: 20020620, end: 20020621
  2. BEXTRA [Suspect]
     Indication: BACK PAIN
  3. CARDIZEM [Concomitant]
  4. ASPIRIN [Concomitant]
  5. BETA BLOCKING AGENTS [Concomitant]
  6. ELAVIL [Concomitant]

REACTIONS (7)
  - AGEUSIA [None]
  - BLOOD POTASSIUM DECREASED [None]
  - HYPOSMIA [None]
  - OESOPHAGITIS [None]
  - PALPITATIONS [None]
  - VOMITING [None]
  - WEIGHT DECREASED [None]
